FAERS Safety Report 5091800-6 (Version None)
Quarter: 2006Q3

REPORT INFORMATION
  Report Type: 
  Country: None (occurrence: None)
  Receive Date: 20060829
  Receipt Date: 20060601
  Transmission Date: 20061208
  Serious: No
  Sender: FDA-Public Use
  Company Number: US-BRISTOL-MYERS SQUIBB COMPANY-13398995

PATIENT
  Age: 63 Year
  Sex: Female
  Weight: 79 kg

DRUGS (14)
  1. ERBITUX [Suspect]
     Indication: COLON CANCER METASTATIC
     Route: 042
  2. IRINOTECAN HCL [Concomitant]
  3. ASPIRIN [Concomitant]
  4. POTASSIUM CHLORIDE [Concomitant]
  5. METOPROLOL TARTRATE [Concomitant]
  6. ACCUPRIL [Concomitant]
  7. PROTONIX [Concomitant]
  8. THEOPHYLLINE [Concomitant]
  9. FLOVENT [Concomitant]
  10. VENTOLIN [Concomitant]
  11. ZOFRAN [Concomitant]
     Indication: PREMEDICATION
     Route: 042
  12. BENADRYL [Concomitant]
     Indication: PREMEDICATION
     Route: 042
  13. DECADRON [Concomitant]
     Indication: PREMEDICATION
     Route: 042
  14. ZANTAC [Concomitant]
     Indication: PREMEDICATION
     Route: 042

REACTIONS (1)
  - PARONYCHIA [None]
